FAERS Safety Report 12816704 (Version 2)
Quarter: 2017Q3

REPORT INFORMATION
  Report Type: Spontaneous
  Country: US (occurrence: US)
  Receive Date: 20161006
  Receipt Date: 20170929
  Transmission Date: 20171127
  Serious: No
  Sender: FDA-Public Use
  Company Number: US-NOVEN PHARMACEUTICALS, INC.-US2016001393

PATIENT

DRUGS (4)
  1. COMBIPATCH [Suspect]
     Active Substance: ESTRADIOL\NORETHINDRONE ACETATE
     Indication: HOT FLUSH
     Dosage: 0.05/0.14MG, UNKNOWN
     Route: 062
     Dates: start: 2014, end: 201611
  2. OXYBUTYNIN CHLORIDE. [Concomitant]
     Active Substance: OXYBUTYNIN CHLORIDE
     Indication: PROSTATITIS
  3. NIZATIDINE. [Concomitant]
     Active Substance: NIZATIDINE
     Indication: GASTROOESOPHAGEAL REFLUX DISEASE
  4. COMBIPATCH [Suspect]
     Active Substance: ESTRADIOL\NORETHINDRONE ACETATE
     Indication: NIGHT SWEATS

REACTIONS (6)
  - Hot flush [Unknown]
  - Vaginal haemorrhage [Unknown]
  - Drug dose omission [Not Recovered/Not Resolved]
  - Back pain [Unknown]
  - Product storage error [Unknown]
  - Product adhesion issue [Unknown]

NARRATIVE: CASE EVENT DATE: 201611
